FAERS Safety Report 7260437-2 (Version None)
Quarter: 2011Q1

REPORT INFORMATION
  Report Type: 
  Country: None (occurrence: None)
  Receive Date: 20110130
  Receipt Date: 20101110
  Transmission Date: 20110831
  Serious: Yes (Other)
  Sender: FDA-Public Use
  Company Number: US-ABBOTT-10P-163-0684471-00

PATIENT
  Sex: Female
  Weight: 113.5 kg

DRUGS (11)
  1. HUMIRA [Suspect]
     Indication: RHEUMATOID ARTHRITIS
     Dates: start: 20080101, end: 20100901
  2. METHOTREXATE [Concomitant]
     Indication: RHEUMATOID ARTHRITIS
  3. LEVOTHYROXINE SODIUM [Concomitant]
     Indication: HYPOTHYROIDISM
  4. NEXIUM [Concomitant]
     Indication: GASTROOESOPHAGEAL REFLUX DISEASE
  5. FUROSEMIDE [Concomitant]
     Indication: FLUID RETENTION
  6. METOPROLOL [Concomitant]
     Indication: HYPERTENSION
  7. KLOR-CON [Concomitant]
     Indication: MINERAL SUPPLEMENTATION
  8. LISINOPRIL [Concomitant]
     Indication: HYPERTENSION
  9. HUMIRA [Suspect]
     Dates: start: 20101013
  10. FOLIC ACID [Concomitant]
     Indication: PRODUCT USED FOR UNKNOWN INDICATION
  11. AMLODIPINE [Concomitant]
     Indication: HYPERTENSION

REACTIONS (1)
  - CATARACT [None]
